FAERS Safety Report 9663968 (Version 1)
Quarter: 2013Q4

REPORT INFORMATION
  Report Type: Spontaneous
  Country: US (occurrence: US)
  Receive Date: 20131101
  Receipt Date: 20131101
  Transmission Date: 20140711
  Serious: Yes (Hospitalization, Other)
  Sender: FDA-Public Use
  Company Number: US-BAXTER-2013BAX042072

PATIENT
  Sex: Female
  Weight: 77.8 kg

DRUGS (1)
  1. DIANEAL LOW CALCIUM [Suspect]
     Indication: PERITONEAL DIALYSIS
     Route: 033
     Dates: start: 201206

REACTIONS (7)
  - Impaired gastric emptying [Recovering/Resolving]
  - Thrombosis [Recovering/Resolving]
  - Hypotension [Recovering/Resolving]
  - Chest pain [Recovered/Resolved]
  - Pneumonia [Recovered/Resolved]
  - Sepsis [Recovered/Resolved]
  - Malnutrition [Recovering/Resolving]
